FAERS Safety Report 14701692 (Version 1)
Quarter: 2018Q1

REPORT INFORMATION
  Report Type: Spontaneous
  Country: DK (occurrence: DK)
  Receive Date: 20180331
  Receipt Date: 20180331
  Transmission Date: 20180509
  Serious: Yes (Hospitalization)
  Sender: FDA-Public Use
  Company Number: DK-AUROBINDO-AUR-APL-2018-016700

PATIENT
  Age: 47 Year
  Sex: Female
  Weight: 82 kg

DRUGS (7)
  1. METFORMIN [Suspect]
     Active Substance: METFORMIN HYDROCHLORIDE
     Indication: TYPE 2 DIABETES MELLITUS
     Dosage: STYRKE: 500 MG. STARTDATO UKENDT, MEN I HVERT FALD SIDEN 2016.
     Route: 048
     Dates: end: 20180224
  2. METOPROLOL TARTRATE. [Concomitant]
     Active Substance: METOPROLOL TARTRATE
     Indication: HYPERTENSION
     Dosage: STYRKE: 100 MG.
     Route: 048
     Dates: start: 20130219
  3. TOPIMAX                            /00949801/ [Concomitant]
     Active Substance: PREDNICARBATE
     Indication: MIGRAINE PROPHYLAXIS
     Dosage: STYRKE: 100 MG.
     Route: 048
     Dates: start: 20130502
  4. KALEORID [Concomitant]
     Active Substance: POTASSIUM CHLORIDE
     Indication: MINERAL SUPPLEMENTATION
     Dosage: DOSIS: 2 TABLETTER MORGEN OG 1 AFTEN.STYRKE: 750 MG. ()
     Route: 048
     Dates: start: 20140206
  5. LITAREX                            /00033708/ [Concomitant]
     Indication: MOOD SWINGS
     Dosage: STYRKE: 6 MMOL LI+.
     Route: 048
     Dates: start: 20120812
  6. GABAPENTIN. [Concomitant]
     Active Substance: GABAPENTIN
     Indication: PRODUCT USED FOR UNKNOWN INDICATION
     Dosage: STYRKE: 150 MG.
     Route: 065
  7. LANTUS [Concomitant]
     Active Substance: INSULIN GLARGINE
     Indication: DIABETES MELLITUS
     Dosage: STYRKE: 100 E/ML.
     Route: 058
     Dates: start: 20161104

REACTIONS (3)
  - Loss of consciousness [Recovered/Resolved]
  - Lactic acidosis [Recovered/Resolved]
  - Syncope [Recovered/Resolved]

NARRATIVE: CASE EVENT DATE: 201802
